FAERS Safety Report 5729809-9 (Version None)
Quarter: 2008Q2

REPORT INFORMATION
  Report Type: 
  Country: None (occurrence: None)
  Receive Date: 20080501
  Receipt Date: 20080418
  Transmission Date: 20081010
  Serious: Yes (Hospitalization)
  Sender: FDA-Public Use
  Company Number: 02100-JPN-06-0630

PATIENT
  Age: 67 Year
  Sex: Male

DRUGS (5)
  1. PLETAL [Suspect]
     Indication: CEREBRAL INFARCTION
     Dosage: 100 MG, BID
     Route: 048
     Dates: start: 20060927, end: 20080321
  2. PLETAL [Suspect]
     Indication: BRAIN STEM INFARCTION
     Dosage: 81 MG, QD
     Route: 048
  3. PHENYTOIN [Concomitant]
  4. SELBEX (TEPRENONE) [Concomitant]
  5. ZYPREXA [Concomitant]

REACTIONS (2)
  - BILE DUCT STONE [None]
  - CHOLECYSTITIS [None]
